FAERS Safety Report 9163140 (Version 1)
Quarter: 2013Q1

REPORT INFORMATION
  Report Type: Spontaneous
  Country: DE (occurrence: None)
  Receive Date: 20130215
  Receipt Date: 20130215
  Transmission Date: 20140127
  Serious: Yes (Life-Threatening)
  Sender: FDA-Public Use
  Company Number: COL_11884_2012

PATIENT
  Age: 63 Year
  Sex: Female

DRUGS (1)
  1. MERIDOL [Suspect]
     Indication: GINGIVITIS
     Route: 048
     Dates: start: 2007

REACTIONS (3)
  - Cardiac arrest [None]
  - Tachycardia [None]
  - Myocardial infarction [None]
